FAERS Safety Report 10556790 (Version 3)
Quarter: 2014Q4

REPORT INFORMATION
  Report Type: Report from Study
  Country: US (occurrence: US)
  Receive Date: 20141031
  Receipt Date: 20141208
  Transmission Date: 20150529
  Serious: Yes (Hospitalization)
  Sender: FDA-Public Use
  Company Number: US-JNJFOC-20141018739

PATIENT
  Age: 19 Year
  Sex: Female
  Weight: 78.3 kg

DRUGS (5)
  1. IRON [Concomitant]
     Active Substance: IRON
     Route: 065
  2. VEDOLIZUMAB [Concomitant]
     Active Substance: VEDOLIZUMAB
     Route: 065
  3. REMICADE [Suspect]
     Active Substance: INFLIXIMAB
     Indication: CROHN^S DISEASE
     Route: 042
     Dates: start: 20070410
  4. OMEPRAZOLE. [Concomitant]
     Active Substance: OMEPRAZOLE
     Route: 065
  5. SENOKOT [Concomitant]
     Active Substance: SENNOSIDES
     Route: 065

REACTIONS (1)
  - Crohn^s disease [Recovered/Resolved]

NARRATIVE: CASE EVENT DATE: 201410
